FAERS Safety Report 16345531 (Version 2)
Quarter: 2019Q2

REPORT INFORMATION
  Report Type: Spontaneous
  Country: US (occurrence: US)
  Receive Date: 20190523
  Receipt Date: 20190530
  Transmission Date: 20190711
  Serious: No
  Sender: FDA-Public Use
  Company Number: US-GLAXOSMITHKLINE-US2019088173

PATIENT
  Age: 71 Year
  Sex: Female

DRUGS (1)
  1. BREO ELLIPTA [Suspect]
     Active Substance: FLUTICASONE FUROATE\VILANTEROL TRIFENATATE
     Indication: PRODUCT USED FOR UNKNOWN INDICATION
     Dosage: 1 PUFF(S), PRN
     Route: 065
     Dates: start: 20180926

REACTIONS (6)
  - Drug ineffective [Unknown]
  - Product complaint [Unknown]
  - Intentional product misuse [Unknown]
  - Dyspnoea exertional [Unknown]
  - Cough [Unknown]
  - Intentional underdose [Unknown]

NARRATIVE: CASE EVENT DATE: 20180926
